FAERS Safety Report 5648333-5 (Version None)
Quarter: 2008Q1

REPORT INFORMATION
  Report Type: 
  Country: None (occurrence: None)
  Receive Date: 20080303
  Receipt Date: 20080303
  Transmission Date: 20080703
  Serious: Yes (Life-Threatening)
  Sender: FDA-Public Use
  Company Number: None

PATIENT
  Age: 29 Year
  Sex: Male
  Weight: 70 kg

DRUGS (5)
  1. PHENYTOIN [Suspect]
     Indication: CONVULSION PROPHYLAXIS
     Dosage: 1 GRAM STAT  IV
     Route: 042
     Dates: start: 20080124, end: 20080124
  2. FENTANYL [Concomitant]
  3. PAVULON [Concomitant]
  4. PROPOFOL [Concomitant]
  5. REMIFENTANYL [Concomitant]

REACTIONS (2)
  - CARDIAC ARREST [None]
  - MEDICATION ERROR [None]
